FAERS Safety Report 6786325-3 (Version None)
Quarter: 2010Q2

REPORT INFORMATION
  Report Type: 
  Country: None (occurrence: None)
  Receive Date: 20100623
  Receipt Date: 20100617
  Transmission Date: 20101027
  Serious: Yes (Hospitalization)
  Sender: FDA-Public Use
  Company Number: US-B.I. PHARMACEUTICALS,INC./RIDGEFIELD-2010-BP-05759BP

PATIENT
  Sex: Female

DRUGS (12)
  1. CATAPRES-TTS-1 [Suspect]
     Indication: HYPERTENSION
     Dosage: 0.1 MG
     Route: 061
     Dates: start: 20091001, end: 20091201
  2. CATAPRES-TTS-1 [Suspect]
     Dosage: 0.2 MG
     Route: 061
     Dates: start: 20091201
  3. LOTREL [Concomitant]
     Indication: HYPERTENSION
  4. BYSTOLIC [Concomitant]
     Indication: HYPERTENSION
     Dosage: 5 MG
  5. LASIX [Concomitant]
     Indication: HYPERTENSION
     Dosage: 1 QOD
  6. SIMVASTATIN [Concomitant]
     Indication: HYPERCHOLESTEROLAEMIA
     Dosage: 80 MG
  7. SYNTHROID [Concomitant]
     Indication: HYPOTHYROIDISM
     Dosage: 50 MCG
  8. PLAVIX [Concomitant]
     Indication: ANTICOAGULANT THERAPY
     Dosage: 75 MG
  9. PROTONIX [Concomitant]
     Indication: GASTROOESOPHAGEAL REFLUX DISEASE
     Dosage: 40 MG
  10. XANAX [Concomitant]
     Indication: INSOMNIA
     Dosage: 0.5 MG
  11. IMODIUM [Concomitant]
     Indication: GASTRIC DISORDER
  12. TEKTURNA [Concomitant]
     Indication: HYPERTENSION
     Dosage: 300 MG

REACTIONS (1)
  - BLOOD PRESSURE INCREASED [None]
